FAERS Safety Report 15093213 (Version 3)
Quarter: 2018Q3

REPORT INFORMATION
  Report Type: Spontaneous
  Country: BR (occurrence: BR)
  Receive Date: 20180629
  Receipt Date: 20180924
  Transmission Date: 20181010
  Serious: Yes (Death, Hospitalization)
  Sender: FDA-Public Use
  Company Number: PHHY2018BR029781

PATIENT
  Sex: Female
  Weight: 45 kg

DRUGS (4)
  1. ENTRESTO [Suspect]
     Active Substance: SACUBITRIL\VALSARTAN
     Dosage: 70 MG, QD (AT NIGHT)
     Route: 048
  2. ENTRESTO [Suspect]
     Active Substance: SACUBITRIL\VALSARTAN
     Indication: CARDIAC FAILURE CHRONIC
     Dosage: 50 MG, QD (IN THE MORNING)
     Route: 048
     Dates: start: 201711, end: 201804
  3. APRESOLIN [Suspect]
     Active Substance: HYDRALAZINE HYDROCHLORIDE
     Indication: PRODUCT USED FOR UNKNOWN INDICATION
     Dosage: 1 DF, TID (EVERY 8 HOURS)
     Route: 048
     Dates: start: 201804
  4. ENTRESTO [Suspect]
     Active Substance: SACUBITRIL\VALSARTAN
     Dosage: 50 MG, QD (IN THE MORNING)
     Route: 048

REACTIONS (5)
  - Blood urea increased [Recovering/Resolving]
  - Renal disorder [Fatal]
  - Blood pressure decreased [Recovering/Resolving]
  - Blood sodium increased [Recovering/Resolving]
  - Blood potassium increased [Recovering/Resolving]
